FAERS Safety Report 21781437 (Version 3)
Quarter: 2023Q1

REPORT INFORMATION
  Report Type: Spontaneous
  Country: US (occurrence: US)
  Receive Date: 20221227
  Receipt Date: 20230317
  Transmission Date: 20230417
  Serious: No
  Sender: FDA-Public Use
  Company Number: US-PFIZER INC-202201387340

PATIENT
  Age: 51 Year
  Sex: Male
  Weight: 95.25 kg

DRUGS (2)
  1. GENOTROPIN [Suspect]
     Active Substance: SOMATROPIN
     Indication: Oncologic complication
     Dosage: 5 MG
  2. GENOTROPIN [Suspect]
     Active Substance: SOMATROPIN
     Indication: Endocrine disorder

REACTIONS (4)
  - Device information output issue [Unknown]
  - Product dose omission issue [Recovered/Resolved]
  - Device power source issue [Unknown]
  - Off label use [Unknown]

NARRATIVE: CASE EVENT DATE: 20221201
